FAERS Safety Report 6801275-1 (Version None)
Quarter: 2010Q2

REPORT INFORMATION
  Report Type: 
  Country: None (occurrence: None)
  Receive Date: 20100629
  Receipt Date: 20100429
  Transmission Date: 20101027
  Serious: Yes (Other)
  Sender: FDA-Public Use
  Company Number: A0857301A

PATIENT

DRUGS (2)
  1. LAMICTAL [Suspect]
     Indication: DRUG USE FOR UNKNOWN INDICATION
  2. SEIZURE MEDICATION [Concomitant]

REACTIONS (1)
  - CONVULSION [None]
